FAERS Safety Report 5446519-6 (Version None)
Quarter: 2007Q3

REPORT INFORMATION
  Report Type: 
  Country: None (occurrence: None)
  Receive Date: 20070907
  Receipt Date: 20070829
  Transmission Date: 20080115
  Serious: Yes (Hospitalization)
  Sender: FDA-Public Use
  Company Number: FR-JNJFOC-20070900429

PATIENT
  Sex: Female

DRUGS (6)
  1. IXPRIM [Suspect]
     Indication: NEURALGIA
     Dosage: 150MG PLUS 1300MG DAILY
     Route: 065
  2. ZOVIRAX [Suspect]
     Indication: HERPES ZOSTER
     Route: 048
  3. ZELITREX [Suspect]
     Indication: HERPES ZOSTER
     Route: 048
  4. BRISTOPEN [Suspect]
     Indication: DRUG USE FOR UNKNOWN INDICATION
     Route: 048
  5. AUGMENTIN '125' [Suspect]
     Indication: DRUG USE FOR UNKNOWN INDICATION
     Route: 048
  6. LYRICA [Suspect]
     Indication: NEURALGIA
     Route: 048

REACTIONS (1)
  - PANCYTOPENIA [None]
